FAERS Safety Report 6810731-1 (Version None)
Quarter: 2010Q2

REPORT INFORMATION
  Report Type: 
  Country: None (occurrence: None)
  Receive Date: 20100630
  Receipt Date: 20071025
  Transmission Date: 20101027
  Serious: No
  Sender: FDA-Public Use
  Company Number: US-PFIZER INC-2007067144

PATIENT
  Sex: Female
  Weight: 56.7 kg

DRUGS (3)
  1. NICOTROL [Suspect]
     Indication: NICOTINE DEPENDENCE
     Dates: start: 20070101
  2. MAXAIR [Concomitant]
  3. ACETYLSALICYLIC ACID [Concomitant]

REACTIONS (3)
  - DYSPNOEA [None]
  - HEADACHE [None]
  - MUSCLE TIGHTNESS [None]
